FAERS Safety Report 25640936 (Version 1)
Quarter: 2025Q3

REPORT INFORMATION
  Report Type: Spontaneous
  Country: EU (occurrence: EU)
  Receive Date: 20250804
  Receipt Date: 20250804
  Transmission Date: 20251020
  Serious: Yes (Hospitalization, Other)
  Sender: BRACCO
  Company Number: None

PATIENT
  Age: 48 Year
  Sex: Male

DRUGS (3)
  1. IOMERON [Suspect]
     Active Substance: IOMEPROL
     Indication: Computerised tomogram abdomen abnormal
     Route: 042
     Dates: start: 20240704, end: 20240704
  2. LINEZOLID [Suspect]
     Active Substance: LINEZOLID
     Indication: Pyelonephritis
     Dosage: 600 MG, BID
     Route: 042
     Dates: start: 20240808, end: 20240816
  3. TEICOPLANIN [Suspect]
     Active Substance: TEICOPLANIN
     Indication: Pyelonephritis
     Dosage: 6 MG/KG EVERY 12 HOURS
     Route: 042
     Dates: start: 20240716, end: 20240808

REACTIONS (4)
  - Thrombocytopenia [Recovered/Resolved]
  - Pruritus [Recovering/Resolving]
  - Eosinophilia [Recovering/Resolving]
  - Thrombocytopenia [Recovered/Resolved]

NARRATIVE: CASE EVENT DATE: 20240802
